FAERS Safety Report 8304312-0 (Version None)
Quarter: 2012Q2

REPORT INFORMATION
  Report Type: 
  Country: None (occurrence: None)
  Receive Date: 20120423
  Receipt Date: 20120423
  Transmission Date: 20120825
  Serious: No
  Sender: FDA-Public Use
  Company Number: None

PATIENT
  Age: 65 Year
  Sex: Female
  Weight: 74.842 kg

DRUGS (3)
  1. LANTUS [Suspect]
     Indication: TYPE 2 DIABETES MELLITUS
     Dosage: 30 UNITS
     Route: 058
     Dates: start: 20100218, end: 20120326
  2. NOVOLOG [Concomitant]
     Indication: TYPE 2 DIABETES MELLITUS
     Dosage: 8 UNITS
     Route: 058
     Dates: start: 20110724, end: 20120319
  3. LANTUS [Concomitant]

REACTIONS (6)
  - CARDIAC FLUTTER [None]
  - PALPITATIONS [None]
  - DRUG INEFFECTIVE [None]
  - BLOOD GLUCOSE FLUCTUATION [None]
  - MIDDLE INSOMNIA [None]
  - HEART RATE IRREGULAR [None]
